FAERS Safety Report 7747318-2 (Version None)
Quarter: 2011Q3

REPORT INFORMATION
  Report Type: 
  Country: None (occurrence: None)
  Receive Date: 20110909
  Receipt Date: 20110826
  Transmission Date: 20111222
  Serious: Yes (Death)
  Sender: FDA-Public Use
  Company Number: AUR-APL-2011-04817

PATIENT
  Age: 76 Year
  Sex: Male
  Weight: 80 kg

DRUGS (7)
  1. FENTANYL [Concomitant]
  2. NOVAMINSULFON-RATIOPHARM TROPFEN (METAMIZOLE SODIUM) [Concomitant]
  3. MCP-RATIOPHARM (METOCLOPRAMIDE HYDROCHLORIDE) [Concomitant]
  4. NOVAMINSULFON-RATIOPHARM TROPHEN (METAMIZOLE SODIUM) [Concomitant]
  5. MIRTAZAPINE [Suspect]
     Indication: DEPRESSION
     Dosage: 15  MG, ORAL
     Route: 048
     Dates: start: 20110213, end: 20110216
  6. OLICLINOMEL (OLICLINOMEL) [Concomitant]
  7. MCP-RATIOPHARM (METOCLOPRAMIDE HYDROCHLORIDE) [Concomitant]

REACTIONS (3)
  - STEVENS-JOHNSON SYNDROME [None]
  - BLOOD CREATININE INCREASED [None]
  - GAMMA-GLUTAMYLTRANSFERASE INCREASED [None]
